FAERS Safety Report 7111716-0 (Version None)
Quarter: 2010Q4

REPORT INFORMATION
  Report Type: 
  Country: None (occurrence: None)
  Receive Date: 20101118
  Receipt Date: 20101105
  Transmission Date: 20110411
  Serious: Yes (Other)
  Sender: FDA-Public Use
  Company Number: JP-MERCK-1010USA00417

PATIENT
  Age: 83 Year
  Sex: Female
  Weight: 59 kg

DRUGS (5)
  1. FOSAMAX [Suspect]
     Indication: OSTEOPOROSIS
     Route: 048
     Dates: start: 20060628, end: 20101005
  2. WARKMIN [Concomitant]
     Indication: OSTEOPOROSIS
     Route: 048
     Dates: start: 20060801
  3. GOSHA-JINKI-GAN [Concomitant]
     Route: 048
     Dates: start: 20070622
  4. SENNOSIDES [Concomitant]
     Route: 048
     Dates: start: 20080919
  5. OPALMON [Concomitant]
     Route: 048
     Dates: start: 20090612

REACTIONS (2)
  - FALL [None]
  - FEMUR FRACTURE [None]
